FAERS Safety Report 20855638 (Version 2)
Quarter: 2022Q2

REPORT INFORMATION
  Report Type: Spontaneous
  Country: KW (occurrence: KW)
  Receive Date: 20220520
  Receipt Date: 20220524
  Transmission Date: 20220721
  Serious: Yes (Death, Hospitalization)
  Sender: FDA-Public Use
  Company Number: EG-STRIDES ARCOLAB LIMITED-2022SP005753

PATIENT
  Age: 31 Year
  Sex: Female

DRUGS (5)
  1. DEXAMETHASONE [Suspect]
     Active Substance: DEXAMETHASONE
     Indication: Adjuvant therapy
     Dosage: UNK
     Route: 065
  2. HEPARIN [Suspect]
     Active Substance: HEPARIN SODIUM
     Indication: Adjuvant therapy
     Dosage: UNK
     Route: 042
  3. COLISTIN [Suspect]
     Active Substance: COLISTIN
     Indication: Candida infection
     Dosage: UNK
     Route: 065
  4. MEROPENEM [Suspect]
     Active Substance: MEROPENEM
     Indication: Candida infection
     Dosage: UNK
     Route: 065
  5. VANCOMYCIN [Suspect]
     Active Substance: VANCOMYCIN
     Indication: Candida infection
     Dosage: UNK
     Route: 065

REACTIONS (3)
  - Septic shock [Fatal]
  - Candida infection [Unknown]
  - Maternal exposure during pregnancy [Unknown]
